FAERS Safety Report 7780551-2 (Version None)
Quarter: 2011Q3

REPORT INFORMATION
  Report Type: 
  Country: None (occurrence: None)
  Receive Date: 20110927
  Receipt Date: 20110113
  Transmission Date: 20111222
  Serious: No
  Sender: FDA-Public Use
  Company Number: US-ASTRAZENECA-2011SE02324

PATIENT
  Age: 49 Year
  Sex: Female
  Weight: 64.9 kg

DRUGS (6)
  1. ADVAIR DISKUS 100/50 [Concomitant]
  2. CELEXA [Concomitant]
  3. LAMICTAL [Concomitant]
  4. SEROQUEL [Suspect]
     Indication: DEPRESSION
     Route: 048
     Dates: start: 20100101
  5. WELLBUTRIN [Concomitant]
  6. BUTEROL [Concomitant]

REACTIONS (3)
  - DRUG DOSE OMISSION [None]
  - TACHYPHRENIA [None]
  - INSOMNIA [None]
